FAERS Safety Report 9567055 (Version 1)
Quarter: 2013Q3

REPORT INFORMATION
  Report Type: Spontaneous
  Country: US (occurrence: US)
  Receive Date: 20130930
  Receipt Date: 20130930
  Transmission Date: 20140515
  Serious: No
  Sender: FDA-Public Use
  Company Number: US-AMGEN-USASP2012061532

PATIENT
  Age: 61 Year
  Sex: Male

DRUGS (2)
  1. ENBREL [Suspect]
     Indication: RHEUMATOID ARTHRITIS
     Dosage: 50 MG, QWK
     Route: 058
     Dates: start: 201205
  2. DOXYCYCLINE [Concomitant]
     Dosage: 100 MG BID FOR 10 DAYS
     Route: 048
     Dates: start: 20120924

REACTIONS (4)
  - Cyst drainage [Unknown]
  - Pyrexia [Unknown]
  - Chills [Unknown]
  - Wound [Unknown]
